FAERS Safety Report 4802939-1 (Version None)
Quarter: 2005Q4

REPORT INFORMATION
  Report Type: 
  Country: None (occurrence: None)
  Receive Date: 20051019
  Receipt Date: 20051006
  Transmission Date: 20060501
  Serious: Yes (Hospitalization)
  Sender: FDA-Public Use
  Company Number: FR-NOVOPROD-247606

PATIENT
  Age: 45 Year
  Sex: Female

DRUGS (3)
  1. NOVONORM [Suspect]
     Indication: INSULIN-REQUIRING TYPE II DIABETES MELLITUS
     Dosage: 1 MG, QD
     Route: 048
     Dates: start: 20050815, end: 20050907
  2. DIPIPERON [Concomitant]
     Indication: ILL-DEFINED DISORDER
     Route: 048
     Dates: end: 20050907
  3. FLUVOXAMINE [Concomitant]
     Indication: ILL-DEFINED DISORDER
     Route: 048
     Dates: end: 20050907

REACTIONS (3)
  - COAGULOPATHY [None]
  - HEPATOCELLULAR DAMAGE [None]
  - HYPOGLYCAEMIA [None]
